FAERS Safety Report 8615048-0 (Version None)
Quarter: 2012Q3

REPORT INFORMATION
  Report Type: 
  Country: None (occurrence: None)
  Receive Date: 20120823
  Receipt Date: 20120809
  Transmission Date: 20120928
  Serious: Yes (Disabling, Other)
  Sender: FDA-Public Use
  Company Number: GB-RANBAXY-2012R1-59082

PATIENT
  Age: 32 Year
  Sex: Female

DRUGS (7)
  1. FERROUS SULFATE TAB [Concomitant]
     Indication: ANAEMIA
     Dosage: UNK
     Route: 065
  2. FLUCLOXACILLIN [Concomitant]
     Indication: POSTOPERATIVE WOUND COMPLICATION
  3. AMOXICILLIN AND CLAVULANATE POTASSIUM [Suspect]
     Indication: ANTIBIOTIC PROPHYLAXIS
     Dosage: 1 DF, TID
     Route: 048
     Dates: start: 20120725
  4. ACETAMINOPHEN/HYDROCODONE BITARTRATE [Suspect]
     Indication: POSTOPERATIVE ANALGESIA
     Dosage: 1 DF, QID
     Route: 048
     Dates: start: 20120725, end: 20120730
  5. FLUCLOXACILLIN [Concomitant]
     Indication: ANTIBIOTIC PROPHYLAXIS
     Dosage: UNK
     Route: 065
  6. ACETAMINOPHEN [Concomitant]
     Indication: POSTOPERATIVE ANALGESIA
     Dosage: UNK
     Route: 065
  7. DICLOFENAC SODIUM [Suspect]
     Indication: POSTOPERATIVE ANALGESIA
     Dosage: 50 MG, TID
     Route: 048
     Dates: start: 20120725

REACTIONS (3)
  - DEFAECATION URGENCY [None]
  - CONSTIPATION [None]
  - PAIN [None]
